FAERS Safety Report 9576750 (Version 1)
Quarter: 2013Q4

REPORT INFORMATION
  Report Type: Spontaneous
  Country: US (occurrence: US)
  Receive Date: 20131001
  Receipt Date: 20131001
  Transmission Date: 20140711
  Serious: No
  Sender: FDA-Public Use
  Company Number: US-AMGEN-USASP2013004731

PATIENT
  Age: 63 Year
  Sex: Female

DRUGS (20)
  1. ENBREL [Suspect]
     Indication: PSORIASIS
     Dosage: 25 MG, 2 TIMES/WK
     Route: 058
  2. PREDNISONE [Concomitant]
     Dosage: UNK
  3. FIBERCON [Concomitant]
     Dosage: 625 MG, UNK
  4. CENTRUM SILVER                     /02363801/ [Concomitant]
     Dosage: UNK , UNK
  5. FLEXERIL                           /00428402/ [Concomitant]
     Dosage: 10 MG, UNK
  6. LASIX                              /00032601/ [Concomitant]
     Dosage: 40 MG, UNK
  7. NORVASC [Concomitant]
     Dosage: 2.5 MG, UNK
  8. LIPITOR [Concomitant]
     Dosage: 20 MG, UNK
  9. TRAMADOL HCL [Concomitant]
     Dosage: 50 MG, UNK
  10. LISINOPRIL [Concomitant]
     Dosage: 20 MG, UNK
  11. ALBUTEROL                          /00139501/ [Concomitant]
     Dosage: 90 MUG, UNK
  12. LEVOTHYROXIN [Concomitant]
     Dosage: 100 MUG, UNK
  13. KLOR-CON [Concomitant]
     Dosage: 10 MEQ, UNK
  14. ALAVERT [Concomitant]
     Dosage: 10 MG, UNK
  15. ASA [Concomitant]
     Dosage: 81 MG, UNK
  16. GLUCOSAMINE CHONDROITIN            /01625901/ [Concomitant]
     Dosage: 500 UNK, UNK
  17. CALCIUM [Concomitant]
     Dosage: 500 UNK, UNK
  18. PRILOSEC                           /00661201/ [Concomitant]
     Dosage: 20 MG, UNK
  19. METAXALONE [Concomitant]
     Dosage: 800 MG, UNK
  20. SINGULAIR [Concomitant]
     Dosage: 10 MG, UNK

REACTIONS (2)
  - Injection site rash [Unknown]
  - Injection site erythema [Unknown]
